FAERS Safety Report 18581814 (Version 5)
Quarter: 2021Q1

REPORT INFORMATION
  Report Type: Report from Study
  Country: BR (occurrence: BR)
  Receive Date: 20201204
  Receipt Date: 20210216
  Transmission Date: 20210419
  Serious: Yes (Death, Life-Threatening, Other)
  Sender: FDA-Public Use
  Company Number: BR-GILEAD-2020-0494234

PATIENT
  Age: 76 Year
  Sex: Male
  Weight: 65 kg

DRUGS (67)
  1. RINGER LACTATED [Concomitant]
     Indication: COVID-19
     Dosage: 500 ML
     Dates: start: 20200817
  2. BROMOPRIDA [Concomitant]
  3. OXYGEN. [Concomitant]
     Active Substance: OXYGEN
     Dosage: 70 %
     Route: 007
     Dates: start: 20200906
  4. OXYGEN. [Concomitant]
     Active Substance: OXYGEN
     Dosage: 50 %
     Route: 007
     Dates: start: 20200903
  5. OXYGEN. [Concomitant]
     Active Substance: OXYGEN
     Dosage: 55 %
     Route: 007
     Dates: start: 20200809
  6. PARACETAMOL [Concomitant]
     Active Substance: ACETAMINOPHEN
     Indication: BACK PAIN
     Dosage: 60 GTT DROPS
     Dates: start: 20200817
  7. FUROSEMIDA [FUROSEMIDE] [Concomitant]
     Active Substance: FUROSEMIDE
     Indication: HYPERKALAEMIA
  8. OXYGEN. [Concomitant]
     Active Substance: OXYGEN
     Dosage: 55 %
     Route: 007
     Dates: start: 20200908
  9. OXYGEN. [Concomitant]
     Active Substance: OXYGEN
     Dosage: 50 %
     Route: 007
     Dates: start: 20200827
  10. OXYGEN. [Concomitant]
     Active Substance: OXYGEN
     Dosage: 55 %
     Route: 007
     Dates: start: 20200901
  11. OXYGEN. [Concomitant]
     Active Substance: OXYGEN
     Dosage: 50 %
     Route: 007
     Dates: start: 20200821
  12. OXYGEN. [Concomitant]
     Active Substance: OXYGEN
     Dosage: 40 %
     Route: 007
     Dates: start: 20200821
  13. OXYGEN. [Concomitant]
     Active Substance: OXYGEN
     Dosage: 45 %
     Route: 007
     Dates: start: 20200828
  14. TOCILIZUMAB. [Suspect]
     Active Substance: TOCILIZUMAB
     Indication: COVID-19 PNEUMONIA
     Dosage: MOST RECENT DOSE PRIOR TO AE/SAE (100 ML) AT 19.05
     Route: 042
     Dates: start: 20200819, end: 20200819
  15. ROCURONIUM [Concomitant]
     Active Substance: ROCURONIUM BROMIDE
     Indication: SEDATION
  16. COLISTIN [Concomitant]
     Active Substance: COLISTIN
  17. GLUCOSE [Concomitant]
     Active Substance: DEXTROSE
     Indication: HYPOGLYCAEMIA
  18. OXYGEN. [Concomitant]
     Active Substance: OXYGEN
     Dosage: 50 %
     Route: 007
     Dates: start: 20200902
  19. OXYGEN. [Concomitant]
     Active Substance: OXYGEN
     Dosage: 50 %
     Route: 007
     Dates: start: 20200824
  20. OXYGEN. [Concomitant]
     Active Substance: OXYGEN
     Dosage: 100 %
     Route: 007
     Dates: start: 20200819
  21. DEXAMETHASONE. [Concomitant]
     Active Substance: DEXAMETHASONE
     Indication: COVID-19
     Dosage: 1 DOSAGE FORM
     Dates: start: 20200817
  22. PRECEDEX [Concomitant]
     Active Substance: DEXMEDETOMIDINE HYDROCHLORIDE
     Indication: ANXIETY
     Dosage: 200 UG
     Dates: start: 20200817
  23. CYCLOBENZAPRINE. [Concomitant]
     Active Substance: CYCLOBENZAPRINE
     Indication: BACK PAIN
     Dosage: 5 MG
     Dates: start: 20200817
  24. FINASTERIDE. [Concomitant]
     Active Substance: FINASTERIDE
     Indication: BENIGN PROSTATIC HYPERPLASIA
     Dosage: 5 MG
     Dates: start: 20200818
  25. BIMATOPROST;TIMOLOL MALEATE [Concomitant]
     Indication: GLAUCOMA
     Dates: start: 20200817
  26. ENOXAPARIN [Concomitant]
     Active Substance: ENOXAPARIN
     Indication: EMBOLISM VENOUS
  27. NORADRENALINE (NORPINEPHRINE) [Concomitant]
     Active Substance: NOREPINEPHRINE
     Indication: COVID-19
  28. NORADRENALINE (NORPINEPHRINE) [Concomitant]
     Active Substance: NOREPINEPHRINE
     Indication: SEDATION
  29. OMEPRAZOLE. [Concomitant]
     Active Substance: OMEPRAZOLE
     Indication: GASTRIC ULCER
  30. VANCOMICINA [VANCOMYCIN] [Concomitant]
     Active Substance: VANCOMYCIN
     Indication: BACTERIAL INFECTION
  31. MEROPENEM. [Concomitant]
     Active Substance: MEROPENEM
  32. OXYGEN. [Concomitant]
     Active Substance: OXYGEN
     Dosage: 50 %
     Route: 007
     Dates: start: 20200825
  33. OXYGEN. [Concomitant]
     Active Substance: OXYGEN
     Dosage: 50 %
     Route: 007
     Dates: start: 20200822
  34. OXYGEN. [Concomitant]
     Active Substance: OXYGEN
     Dosage: 55 %
     Route: 007
     Dates: start: 20200831
  35. DIPYRONE [Concomitant]
     Active Substance: DIPYRONE
     Indication: COVID-19
     Dates: start: 20200817
  36. DOBUTAMINE [Concomitant]
     Active Substance: DOBUTAMINE HYDROCHLORIDE
  37. OXYGEN. [Concomitant]
     Active Substance: OXYGEN
     Dosage: 40 %
     Route: 007
     Dates: start: 20200822
  38. OXYGEN. [Concomitant]
     Active Substance: OXYGEN
     Dosage: 60 %
     Route: 007
     Dates: start: 20200823
  39. OXYGEN. [Concomitant]
     Active Substance: OXYGEN
     Dosage: 60 %
     Route: 007
     Dates: start: 20200902
  40. OXYGEN. [Concomitant]
     Active Substance: OXYGEN
     Dosage: 60 %
     Route: 007
     Dates: start: 20200903
  41. CEFTRIAXONE. [Concomitant]
     Active Substance: CEFTRIAXONE
     Indication: COVID-19
     Dosage: 2 G
     Dates: start: 20200817
  42. FENTANIL [Concomitant]
     Active Substance: FENTANYL
     Indication: SEDATION
  43. LASIX [Concomitant]
     Active Substance: FUROSEMIDE
     Indication: HYPERKALAEMIA
  44. ENCRISE [Concomitant]
  45. INSULIN [Concomitant]
     Active Substance: INSULIN NOS
     Indication: HYPERKALAEMIA
  46. OXYGEN. [Concomitant]
     Active Substance: OXYGEN
     Dosage: 65 %
     Route: 007
     Dates: start: 20200905
  47. OXYGEN. [Concomitant]
     Active Substance: OXYGEN
     Dosage: 50 %
     Route: 007
     Dates: start: 20200831
  48. OXYGEN. [Concomitant]
     Active Substance: OXYGEN
     Dosage: 55 %
     Route: 007
     Dates: start: 20200909
  49. OXYGEN. [Concomitant]
     Active Substance: OXYGEN
     Dosage: 60 %
     Route: 007
     Dates: start: 20200907
  50. REMDESIVIR. [Suspect]
     Active Substance: REMDESIVIR
     Indication: COVID-19 PNEUMONIA
     Dosage: 200 MG, QD LOADING DOSE
     Route: 042
     Dates: start: 20200819
  51. AZITHROMYCIN ANHYDROUS. [Concomitant]
     Active Substance: AZITHROMYCIN ANHYDROUS
     Indication: COVID-19
     Dosage: 500 MG
     Dates: start: 20200817
  52. MIDAZOLAM. [Concomitant]
     Active Substance: MIDAZOLAM
  53. AMIODARONE [Concomitant]
     Active Substance: AMIODARONE
     Indication: ATRIAL FIBRILLATION
  54. HYDROCORTISONE. [Concomitant]
     Active Substance: HYDROCORTISONE
     Indication: SEPTIC SHOCK
  55. OXYGEN. [Concomitant]
     Active Substance: OXYGEN
     Dosage: 50 %
     Route: 007
     Dates: start: 20200820
  56. OXYGEN. [Concomitant]
     Active Substance: OXYGEN
     Dosage: 45 %
     Route: 007
     Dates: start: 20200829
  57. OXYGEN. [Concomitant]
     Active Substance: OXYGEN
     Dosage: 65 %
     Route: 007
     Dates: start: 20200804
  58. OXYGEN. [Concomitant]
     Active Substance: OXYGEN
     Dosage: 55 %
     Route: 007
     Dates: start: 20200819
  59. REMDESIVIR. [Suspect]
     Active Substance: REMDESIVIR
     Dosage: DATE OF MOST RECENT DOSE (100 ML) PRIOR TO AE/SAE ONSET 28/AUG/2020 AT 15:01 PM  ENDED AT 16:01PM
     Route: 042
  60. BIMATOPROST. [Concomitant]
     Active Substance: BIMATOPROST
     Indication: GLAUCOMA
  61. AMICACINA [AMIKACIN] [Concomitant]
  62. OXYGEN. [Concomitant]
     Active Substance: OXYGEN
     Dosage: 50 %
     Route: 007
     Dates: start: 20200826
  63. OXYGEN. [Concomitant]
     Active Substance: OXYGEN
     Dosage: 60 %
     Route: 007
     Dates: start: 20200904
  64. OXYGEN. [Concomitant]
     Active Substance: OXYGEN
     Dosage: 50 %
     Route: 007
     Dates: start: 20200830
  65. OXYGEN. [Concomitant]
     Active Substance: OXYGEN
     Dosage: 50 %
     Route: 007
     Dates: start: 20200828
  66. OXYGEN. [Concomitant]
     Active Substance: OXYGEN
     Dosage: 45 %
     Route: 007
     Dates: start: 20200829
  67. OXYGEN. [Concomitant]
     Active Substance: OXYGEN
     Dosage: 70 %
     Route: 007
     Dates: start: 20200905

REACTIONS (3)
  - Septic shock [Fatal]
  - Pulmonary embolism [Not Recovered/Not Resolved]
  - Enterobacter infection [Not Recovered/Not Resolved]

NARRATIVE: CASE EVENT DATE: 20200826
